FAERS Safety Report 5584767-5 (Version None)
Quarter: 2008Q1

REPORT INFORMATION
  Report Type: 
  Country: None (occurrence: None)
  Receive Date: 20080108
  Receipt Date: 20071022
  Transmission Date: 20080703
  Serious: Yes (Hospitalization, Other)
  Sender: FDA-Public Use
  Company Number: US-GILEAD-2007-0013937

PATIENT
  Sex: Female
  Weight: 113.5 kg

DRUGS (10)
  1. LETAIRIS [Suspect]
     Indication: PULMONARY HYPERTENSION
     Route: 048
  2. LASIX [Concomitant]
     Route: 048
  3. PREDNISONE TAB [Concomitant]
     Route: 048
  4. COUMADIN [Concomitant]
     Route: 048
  5. SYNTHROID [Concomitant]
     Route: 048
  6. METOLAZONE [Concomitant]
     Route: 048
  7. KLOR-CON [Concomitant]
     Route: 048
  8. CALCIUM [Concomitant]
     Route: 048
  9. CARDIZEM [Concomitant]
     Route: 048
  10. VITAMIN CAP [Concomitant]
     Route: 048

REACTIONS (1)
  - LIVER FUNCTION TEST ABNORMAL [None]
